FAERS Safety Report 10429843 (Version 1)
Quarter: 2014Q3

REPORT INFORMATION
  Report Type: Spontaneous
  Country: US (occurrence: None)
  Receive Date: 20140902
  Receipt Date: 20140902
  Transmission Date: 20150326
  Serious: No
  Sender: FDA-Public Use
  Company Number: None

PATIENT
  Age: 61 Year
  Sex: Male
  Weight: 90.72 kg

DRUGS (1)
  1. ROSUVASTATIN CA [Suspect]
     Active Substance: ROSUVASTATIN CALCIUM
     Indication: BLOOD CHOLESTEROL INCREASED
     Dosage: 1/2 TAB AT BEDTIME P.O
     Route: 048
     Dates: start: 20100402, end: 20140723

REACTIONS (5)
  - Middle insomnia [None]
  - Swelling face [None]
  - Pain [None]
  - Muscle spasms [None]
  - Pain in extremity [None]

NARRATIVE: CASE EVENT DATE: 20140101
